FAERS Safety Report 7584694-8 (Version None)
Quarter: 2011Q2

REPORT INFORMATION
  Report Type: 
  Country: None (occurrence: None)
  Receive Date: 20110630
  Receipt Date: 20110616
  Transmission Date: 20111010
  Serious: Yes (Hospitalization)
  Sender: FDA-Public Use
  Company Number: PHHY2011CH53719

PATIENT
  Age: 77 Year
  Sex: Female

DRUGS (16)
  1. MOTILIUM [Concomitant]
     Dosage: 10 MG THREE PER DAY
     Route: 048
  2. CRESTOR [Concomitant]
     Dosage: 10 MG DAILY DOSE
     Route: 048
  3. JANUVIA [Concomitant]
     Dosage: 100 MG DAILY DOSE
     Route: 048
  4. LERCANIDIPINE [Concomitant]
     Dosage: 10 MG, UNK
     Route: 048
  5. MARCOUMAR [Concomitant]
     Dosage: 3 MG,
     Route: 048
  6. CALPEROS D3 [Concomitant]
     Dosage: 100 MG DAILY DOSE
     Route: 048
  7. MEFIN [Concomitant]
     Dosage: 850 MG TWO PER DAY
     Route: 048
  8. TORSEMIDE [Concomitant]
     Dosage: 10 MG DAILY DOSE
     Route: 048
  9. NEBIVOLOL HCL [Concomitant]
     Dosage: 5 MG 1.5 PER DAY
     Route: 048
  10. PRAMIPEXOLE DIHYCHLLORIDE [Concomitant]
     Dosage: 0.25 MG FOUR PER DAY
     Route: 048
  11. ATACAND [Concomitant]
     Dosage: 8 MG DAILY DOSE
     Route: 048
  12. ZOLEDRONIC ACID [Suspect]
     Dosage: 5 MG, UNK
     Route: 042
     Dates: start: 20110413, end: 20110413
  13. FERINJECT [Concomitant]
     Dosage: 700 MG,
     Route: 041
     Dates: start: 20110420, end: 20110420
  14. CALCORT [Concomitant]
     Dosage: 6 MG DAILY DOSE
     Route: 048
  15. MEFENAMIC ACID [Concomitant]
     Indication: TOOTHACHE
     Dates: start: 20110301, end: 20110301
  16. PANTOPRAZOLE [Concomitant]
     Dosage: 40 MG DAILY DOSE
     Route: 048

REACTIONS (8)
  - ALBUMINURIA [None]
  - RENAL FAILURE ACUTE [None]
  - PROTEIN URINE PRESENT [None]
  - CREATININE RENAL CLEARANCE DECREASED [None]
  - PROTEINURIA [None]
  - BLOOD CREATININE INCREASED [None]
  - UREA URINE INCREASED [None]
  - ALBUMIN URINE PRESENT [None]
